FAERS Safety Report 9890779 (Version 1)
Quarter: 2014Q1

REPORT INFORMATION
  Report Type: Spontaneous
  Country: US (occurrence: None)
  Receive Date: 20140210
  Receipt Date: 20140210
  Transmission Date: 20141002
  Serious: No
  Sender: FDA-Public Use
  Company Number: None

PATIENT
  Age: 83 Year
  Sex: Female

DRUGS (1)
  1. PALIPERIDONE [Suspect]

REACTIONS (4)
  - Anaphylactic reaction [None]
  - Swollen tongue [None]
  - Pharyngeal oedema [None]
  - Respiratory disorder [None]
